FAERS Safety Report 5804224-8 (Version None)
Quarter: 2008Q3

REPORT INFORMATION
  Report Type: 
  Country: None (occurrence: None)
  Receive Date: 20080707
  Receipt Date: 20080627
  Transmission Date: 20090109
  Serious: Yes (Hospitalization)
  Sender: FDA-Public Use
  Company Number: 2008SP012710

PATIENT
  Age: 72 Year
  Sex: Female

DRUGS (9)
  1. BETAMATHASONE DIPROPIONATE [Suspect]
     Indication: PSORIASIS
  2. AUGMENTIN '200' [Suspect]
     Indication: SIGMOIDITIS
     Dosage: PO
     Route: 048
     Dates: start: 20070914, end: 20070924
  3. DEPAKENE [Suspect]
     Indication: EPILEPSY
     Dosage: PO
     Route: 048
  4. DEBRIDAT (TRIMEBUTINE MALEATE) [Suspect]
     Indication: SIGMOIDITIS
     Dosage: PO
     Route: 048
     Dates: start: 20070914, end: 20070924
  5. TIORFAN (ACETORPHAN) [Suspect]
     Indication: DRUG USE FOR UNKNOWN INDICATION
     Dosage: PO
     Route: 048
  6. MOTILYO (DOMPERIDONE) [Suspect]
     Indication: DRUG USE FOR UNKNOWN INDICATION
     Dosage: PO
     Route: 048
  7. ULTRA LEVURE (SACCHAROMYCES BOULARDII) [Suspect]
     Indication: SIGMOIDITIS
     Dosage: PO
     Route: 048
  8. ZYPREXA [Suspect]
     Indication: PSYCHOTIC DISORDER
     Dosage: PO
     Route: 048
  9. IMOVANE (ZOPICLONE) [Suspect]
     Indication: DRUG USE FOR UNKNOWN INDICATION
     Dosage: PO
     Route: 048

REACTIONS (9)
  - LYMPHATIC DISORDER [None]
  - NO THERAPEUTIC RESPONSE [None]
  - OEDEMA PERIPHERAL [None]
  - PRURIGO [None]
  - RASH MACULO-PAPULAR [None]
  - SIGMOIDITIS [None]
  - STASIS DERMATITIS [None]
  - TOXIC SKIN ERUPTION [None]
  - VENOUS INSUFFICIENCY [None]
